FAERS Safety Report 25132310 (Version 1)
Quarter: 2025Q1

REPORT INFORMATION
  Report Type: Spontaneous
  Country: BR (occurrence: BR)
  Receive Date: 20250328
  Receipt Date: 20250328
  Transmission Date: 20250409
  Serious: Yes (Hospitalization)
  Sender: ABBVIE
  Company Number: BR-ABBVIE-6193737

PATIENT
  Age: 53 Year
  Sex: Female

DRUGS (1)
  1. UPADACITINIB [Suspect]
     Active Substance: UPADACITINIB
     Indication: Psoriatic arthropathy
     Route: 048
     Dates: start: 20240406, end: 20240415

REACTIONS (1)
  - Device related infection [Recovering/Resolving]

NARRATIVE: CASE EVENT DATE: 20240401
